FAERS Safety Report 7351469-4 (Version None)
Quarter: 2011Q1

REPORT INFORMATION
  Report Type: 
  Country: None (occurrence: None)
  Receive Date: 20110314
  Receipt Date: 20110221
  Transmission Date: 20110831
  Serious: No
  Sender: FDA-Public Use
  Company Number: US-B.I. PHARMACEUTICALS,INC./RIDGEFIELD-2011-BP-06463BP

PATIENT
  Sex: Male

DRUGS (2)
  1. PRADAXA [Suspect]
     Dosage: 300 MG
     Route: 048
     Dates: start: 20101201, end: 20110101
  2. MULTIVITAMIN [Concomitant]
     Indication: PROPHYLAXIS

REACTIONS (2)
  - ANORECTAL DISCOMFORT [None]
  - RECTAL HAEMORRHAGE [None]
